FAERS Safety Report 24331019 (Version 1)
Quarter: 2024Q3

REPORT INFORMATION
  Report Type: Spontaneous
  Country: CA (occurrence: CA)
  Receive Date: 20240918
  Receipt Date: 20240918
  Transmission Date: 20241017
  Serious: Yes (Other)
  Sender: ROCHE
  Company Number: CA-ROCHE-10000076977

PATIENT
  Sex: Female

DRUGS (5)
  1. BEVACIZUMAB [Suspect]
     Active Substance: BEVACIZUMAB
     Indication: Ovarian cancer
     Route: 065
  2. CAMONSERTIB [Concomitant]
     Active Substance: CAMONSERTIB
     Indication: Ovarian cancer
     Route: 065
  3. GEMCITABINE [Concomitant]
     Active Substance: GEMCITABINE
     Indication: Ovarian cancer metastatic
  4. GEMCITABINE [Concomitant]
     Active Substance: GEMCITABINE
  5. PACLITAXEL [Concomitant]
     Active Substance: PACLITAXEL
     Indication: Ovarian cancer metastatic
     Route: 042

REACTIONS (3)
  - Neutropenia [Recovering/Resolving]
  - Ovarian cancer metastatic [Recovering/Resolving]
  - Therapy partial responder [Recovering/Resolving]
